FAERS Safety Report 4625892-2 (Version None)
Quarter: 2005Q1

REPORT INFORMATION
  Report Type: 
  Country: None (occurrence: None)
  Receive Date: 20050330
  Receipt Date: 20050321
  Transmission Date: 20050727
  Serious: Yes (Hospitalization)
  Sender: FDA-Public Use
  Company Number: US-2005-004166

PATIENT
  Age: 51 Year
  Sex: Male

DRUGS (1)
  1. BETASERON [Suspect]
     Indication: SECONDARY PROGRESSIVE MULTIPLE SCLEROSIS
     Dosage: 8 MIU,EVERY 2D, SUBCUTANEOUS
     Route: 058
     Dates: start: 20031210

REACTIONS (8)
  - APNOEA [None]
  - BLOOD GLUCOSE INCREASED [None]
  - CYSTITIS [None]
  - DRUG CLEARANCE DECREASED [None]
  - HAEMOGLOBIN DECREASED [None]
  - TREMOR [None]
  - UNEVALUABLE EVENT [None]
  - URINARY TRACT INFECTION [None]
